FAERS Safety Report 19974883 (Version 1)
Quarter: 2021Q4

REPORT INFORMATION
  Report Type: Spontaneous
  Country: US (occurrence: US)
  Receive Date: 20211020
  Receipt Date: 20211020
  Transmission Date: 20220303
  Serious: No
  Sender: FDA-Public Use
  Company Number: US-ALLERGAN-2039202US

PATIENT
  Sex: Female

DRUGS (2)
  1. LINZESS [Suspect]
     Active Substance: LINACLOTIDE
     Indication: Product used for unknown indication
     Dosage: UNK
  2. LINZESS [Suspect]
     Active Substance: LINACLOTIDE
     Dosage: UNK

REACTIONS (3)
  - Wrong technique in product usage process [Unknown]
  - Product packaging quantity issue [Unknown]
  - Drug ineffective [Unknown]
